FAERS Safety Report 15669170 (Version 8)
Quarter: 2022Q1

REPORT INFORMATION
  Report Type: Spontaneous
  Country: FR (occurrence: FR)
  Receive Date: 20181129
  Receipt Date: 20220317
  Transmission Date: 20220423
  Serious: Yes (Life-Threatening, Hospitalization, Other)
  Sender: FDA-Public Use
  Company Number: FR-AUROBINDO-AUR-APL-2018-030974

PATIENT
  Age: 40 Year
  Sex: Male

DRUGS (10)
  1. MIRTAZAPINE [Suspect]
     Active Substance: MIRTAZAPINE
     Indication: Post-traumatic stress disorder
     Dosage: 15 MILLIGRAM, ONCE A DAY
     Route: 048
  2. MIRTAZAPINE [Suspect]
     Active Substance: MIRTAZAPINE
     Dosage: 45 MILLIGRAM, ONCE A DAY
     Route: 048
  3. MIRTAZAPINE [Suspect]
     Active Substance: MIRTAZAPINE
     Dosage: 30 MILLIGRAM, ONCE A DAY,DAILY LATER INCREASED BY 15MG, QD (DAY 2)
     Route: 048
  4. PAROXETINE [Suspect]
     Active Substance: PAROXETINE
     Indication: Post-traumatic stress disorder
     Dosage: UNK(THE INITIAL DOSE FOR 2 DAYS)
     Route: 065
  5. PAROXETINE [Suspect]
     Active Substance: PAROXETINE
     Dosage: 40 MILLIGRAM
     Route: 065
  6. PAROXETINE [Suspect]
     Active Substance: PAROXETINE
     Dosage: 20 MILLIGRAM
     Route: 065
  7. QUETIAPINE [Suspect]
     Active Substance: QUETIAPINE
     Indication: Post-traumatic stress disorder
     Dosage: 400 MILLIGRAM, DAILY
     Route: 065
  8. QUETIAPINE [Suspect]
     Active Substance: QUETIAPINE
     Dosage: 600 MILLIGRAM, DAILY,QUETIAPINE INCREASED
     Route: 065
  9. PERICIAZINE [Suspect]
     Active Substance: PERICIAZINE
     Indication: Post-traumatic stress disorder
     Dosage: 1 MILLIGRAM
     Route: 065
  10. PRAZOSIN [Suspect]
     Active Substance: PRAZOSIN
     Indication: Post-traumatic stress disorder
     Dosage: 10 MILLIGRAM
     Route: 065

REACTIONS (6)
  - Rhabdomyolysis [Recovered/Resolved]
  - Product use in unapproved indication [Unknown]
  - Drug resistance [Unknown]
  - Blood creatine phosphokinase increased [Recovered/Resolved]
  - Off label use [Unknown]
  - Myoglobinuria [Unknown]
